FAERS Safety Report 5383575-8 (Version None)
Quarter: 2007Q3

REPORT INFORMATION
  Report Type: 
  Country: None (occurrence: None)
  Receive Date: 20070710
  Receipt Date: 20070709
  Transmission Date: 20080115
  Serious: Yes (Hospitalization, Other)
  Sender: FDA-Public Use
  Company Number: JP-MERCK-0706USA03938

PATIENT
  Age: 65 Year
  Sex: Male

DRUGS (11)
  1. PRIMAXIN [Suspect]
     Route: 042
  2. PRIMAXIN [Suspect]
     Route: 042
  3. PRIMAXIN [Suspect]
     Route: 042
  4. AMIKACINA [Suspect]
     Route: 042
  5. CEFOPERAZONE SODIUM AND SULBACTAM SODIUM [Concomitant]
     Route: 065
  6. CARBENIN [Concomitant]
     Route: 042
  7. MEROPENEM [Concomitant]
     Route: 042
  8. MINOCYCLINE HYDROCHLORIDE [Concomitant]
     Route: 065
  9. RIFAMPIN [Concomitant]
     Route: 048
  10. FOY [Concomitant]
     Route: 042
     Dates: start: 20030716
  11. CIPROFLOXACIN [Concomitant]
     Route: 065
     Dates: start: 20030725

REACTIONS (9)
  - ARTHRITIS [None]
  - CELLULITIS [None]
  - CONDITION AGGRAVATED [None]
  - DISSEMINATED INTRAVASCULAR COAGULATION [None]
  - GASTROINTESTINAL HAEMORRHAGE [None]
  - OSTEOMYELITIS [None]
  - PSEUDOMONAS PSEUDOMALLEI INFECTION [None]
  - RENAL IMPAIRMENT [None]
  - RENAL TUBULAR DISORDER [None]
